FAERS Safety Report 7149180-8 (Version None)
Quarter: 2010Q4

REPORT INFORMATION
  Report Type: 
  Country: None (occurrence: None)
  Receive Date: 20101209
  Receipt Date: 20101202
  Transmission Date: 20110411
  Serious: Yes (Other)
  Sender: FDA-Public Use
  Company Number: AU-AMGEN-QUU413893

PATIENT

DRUGS (12)
  1. ARANESP [Suspect]
     Indication: RENAL FAILURE CHRONIC
     Dosage: 150 A?G, QWK
     Route: 058
     Dates: start: 20080901
  2. EPOETIN BETA [Concomitant]
  3. TACROLIMUS [Concomitant]
     Dosage: 3 MG, BID
  4. MYCOPHENOLATE MOFETIL [Concomitant]
     Dosage: 500 MG, BID
  5. PREDNISOLONE [Concomitant]
     Dosage: 7 MG, QD
  6. CALCITRIOL [Concomitant]
     Dosage: 0.25 A?G, QD
  7. OSTELIN                            /00107901/ [Concomitant]
     Dosage: 1000 IU, QD
  8. ASPIRIN [Concomitant]
     Dosage: 100 MG, QD
  9. CEPHALEXIN [Concomitant]
     Dosage: 250 MG, QD
  10. LEVOTHYROXINE SODIUM [Concomitant]
     Dosage: 50 A?G, QD
  11. SODIBIC [Concomitant]
     Dosage: 840 MG, TID
  12. PANTOPRAZOLE [Concomitant]
     Dosage: 40 MG, QD

REACTIONS (5)
  - APLASIA PURE RED CELL [None]
  - DIARRHOEA INFECTIOUS [None]
  - DRUG INEFFECTIVE [None]
  - PANCYTOPENIA [None]
  - ULCER [None]
